FAERS Safety Report 9626712 (Version 1)
Quarter: 2013Q4

REPORT INFORMATION
  Report Type: Spontaneous
  Country: AT (occurrence: AT)
  Receive Date: 20131016
  Receipt Date: 20131016
  Transmission Date: 20140711
  Serious: Yes (Death)
  Sender: FDA-Public Use
  Company Number: AT-ELI_LILLY_AND_COMPANY-AT201310003310

PATIENT
  Sex: 0

DRUGS (4)
  1. PRASUGREL HYDROCHLORIDE [Suspect]
     Indication: PERCUTANEOUS CORONARY INTERVENTION
  2. REOPRO [Concomitant]
     Indication: PERCUTANEOUS CORONARY INTERVENTION
     Dosage: 0.25 MG/KG, SINGLE
     Route: 022
  3. UNFRACTIONATED HEPARIN [Concomitant]
     Indication: PERCUTANEOUS CORONARY INTERVENTION
     Dosage: 70 IU/KG, SINGLE
     Route: 042
  4. ASPIRIN [Concomitant]
     Indication: PERCUTANEOUS CORONARY INTERVENTION
     Dosage: UNK UNK, SINGLE
     Route: 042

REACTIONS (1)
  - Death [Fatal]
